FAERS Safety Report 5571169-0 (Version None)
Quarter: 2007Q4

REPORT INFORMATION
  Report Type: 
  Country: None (occurrence: None)
  Receive Date: 20071221
  Receipt Date: 20061212
  Transmission Date: 20080405
  Serious: Yes (Other)
  Sender: FDA-Public Use
  Company Number: A0631340A

PATIENT
  Age: 47 Year
  Sex: Female

DRUGS (3)
  1. FLONASE [Suspect]
     Dosage: 1SPR PER DAY
     Route: 045
     Dates: start: 20020601, end: 20051201
  2. INSULIN [Concomitant]
  3. LISINOPRIL [Concomitant]

REACTIONS (1)
  - CATARACT [None]
